FAERS Safety Report 19052836 (Version 16)
Quarter: 2022Q4

REPORT INFORMATION
  Report Type: Spontaneous
  Country: CA (occurrence: CA)
  Receive Date: 20210325
  Receipt Date: 20221129
  Transmission Date: 20230113
  Serious: Yes (Hospitalization, Other)
  Sender: FDA-Public Use
  Company Number: CA-CELLTRION INC.-2020CA025521

PATIENT

DRUGS (37)
  1. INFLECTRA [Suspect]
     Active Substance: INFLIXIMAB-DYYB
     Indication: Crohn^s disease
     Dosage: 300 MG, AT 0, 2, 6, THEN EVERY 8 WEEKS
     Route: 042
     Dates: start: 20200727, end: 20201229
  2. INFLECTRA [Suspect]
     Active Substance: INFLIXIMAB-DYYB
     Dosage: 300 MG, AT 0, 2, 6, THEN EVERY 8 WEEKS
     Route: 042
     Dates: start: 20200810
  3. INFLECTRA [Suspect]
     Active Substance: INFLIXIMAB-DYYB
     Dosage: 300 MG, AT 0, 2, 6, THEN EVERY 8 WEEKS
     Route: 042
     Dates: start: 20200908
  4. INFLECTRA [Suspect]
     Active Substance: INFLIXIMAB-DYYB
     Dosage: 300 MG, AT 0, 2, 6, THEN EVERY 8 WEEKS
     Route: 042
     Dates: start: 20201104
  5. INFLECTRA [Suspect]
     Active Substance: INFLIXIMAB-DYYB
     Dosage: 300 MG, AT 0, 2, 6, THEN EVERY 8 WEEKS
     Route: 042
     Dates: start: 20201229, end: 20201229
  6. INFLECTRA [Suspect]
     Active Substance: INFLIXIMAB-DYYB
     Dosage: 300 MG, EVERY 4 WEEKS
     Route: 042
     Dates: start: 20210225
  7. INFLECTRA [Suspect]
     Active Substance: INFLIXIMAB-DYYB
     Dosage: 300 MG, EVERY 4 WEEKS
     Route: 042
     Dates: start: 20210329
  8. INFLECTRA [Suspect]
     Active Substance: INFLIXIMAB-DYYB
     Dosage: 300 MG, EVERY 4 WEEKS
     Route: 042
     Dates: start: 20210527
  9. INFLECTRA [Suspect]
     Active Substance: INFLIXIMAB-DYYB
     Dosage: 300 MG, EVERY 4 WEEKS
     Route: 042
     Dates: start: 20210726
  10. INFLECTRA [Suspect]
     Active Substance: INFLIXIMAB-DYYB
     Dosage: 300 MG, EVERY 4 WEEKS
     Route: 042
     Dates: start: 20210823
  11. INFLECTRA [Suspect]
     Active Substance: INFLIXIMAB-DYYB
     Dosage: 300 MG, EVERY 4 WEEKS
     Route: 042
     Dates: start: 20211019
  12. INFLECTRA [Suspect]
     Active Substance: INFLIXIMAB-DYYB
     Dosage: 300 MG EVERY 4 WEEKS
     Route: 042
     Dates: start: 20211117
  13. INFLECTRA [Suspect]
     Active Substance: INFLIXIMAB-DYYB
     Dosage: 300 MG EVERY 4 WEEKS
     Route: 042
     Dates: start: 20211216
  14. INFLECTRA [Suspect]
     Active Substance: INFLIXIMAB-DYYB
     Dosage: 300 MG EVERY 4 WEEKS
     Route: 042
     Dates: start: 20220112
  15. INFLECTRA [Suspect]
     Active Substance: INFLIXIMAB-DYYB
     Dosage: 300 MG EVERY 4 WEEKS
     Route: 042
     Dates: start: 20220209
  16. INFLECTRA [Suspect]
     Active Substance: INFLIXIMAB-DYYB
     Dosage: 300 MG EVERY 4 WEEKS
     Route: 042
     Dates: start: 20220309
  17. INFLECTRA [Suspect]
     Active Substance: INFLIXIMAB-DYYB
     Dosage: 300 MG EVERY 4 WEEKS
     Route: 042
     Dates: start: 20220921
  18. INFLECTRA [Suspect]
     Active Substance: INFLIXIMAB-DYYB
     Dosage: 300 MG EVERY 4 WEEKS
     Route: 042
     Dates: start: 20221118
  19. ACETAMINOPHEN [Concomitant]
     Active Substance: ACETAMINOPHEN
     Dosage: 1500 MG, 1X/DAY
     Route: 048
  20. ASACOL [Concomitant]
     Active Substance: MESALAMINE
     Dosage: 6 DF, DAILY
     Route: 065
  21. ASACOL [Concomitant]
     Active Substance: MESALAMINE
     Dosage: 6 DF, 1X/DAY
     Route: 065
  22. HYDROCHLOROTHIAZIDE [Concomitant]
     Active Substance: HYDROCHLOROTHIAZIDE
     Dosage: 25 MG, 1X/DAY
     Route: 048
  23. HYDROCHLOROTHIAZIDE [Concomitant]
     Active Substance: HYDROCHLOROTHIAZIDE
     Dosage: 25 MG, 1X/DAY , 1 TAB
     Route: 048
  24. BUTYLSCOPOLAMINE BROMIDE [Concomitant]
     Active Substance: BUTYLSCOPOLAMINE BROMIDE
     Dosage: UNK
     Route: 065
  25. BUTYLSCOPOLAMINE BROMIDE [Concomitant]
     Active Substance: BUTYLSCOPOLAMINE BROMIDE
     Dosage: 1 DF, UNKNOWN DOSE
     Route: 065
  26. CYANOCOBALAMIN [Concomitant]
     Active Substance: CYANOCOBALAMIN
     Dosage: 1000 MG, 1X/DAY (1 TAB)
     Route: 048
  27. DILAUDID [Concomitant]
     Active Substance: HYDROMORPHONE HYDROCHLORIDE
     Dosage: UNK
     Route: 065
  28. DILAUDID [Concomitant]
     Active Substance: HYDROMORPHONE HYDROCHLORIDE
     Dosage: 1 DF, UNKNOWN DOSE
     Route: 065
  29. ALGELDRATE\SODIUM ALGINATE [Concomitant]
     Active Substance: ALGELDRATE\SODIUM ALGINATE
     Dosage: 2 DF, 1X/DAY
     Route: 048
  30. METRONIDAZOLE [Concomitant]
     Active Substance: METRONIDAZOLE
     Dosage: 1 DF (UNKNOWN DOSE AND UNKNOWN IF ONGOING)
     Route: 042
     Dates: start: 202007
  31. METRONIDAZOLE [Concomitant]
     Active Substance: METRONIDAZOLE
     Dosage: 1 DF (UNKNOWN DOSE AND UNKNOWN IF ONGOING)
     Route: 042
     Dates: start: 202007
  32. PREDNISONE [Concomitant]
     Active Substance: PREDNISONE
     Dosage: UNK
     Route: 065
  33. PREDNISONE [Concomitant]
     Active Substance: PREDNISONE
     Dosage: 1 DF, UNKNOWN DOSE
     Route: 065
  34. RAMIPRIL [Concomitant]
     Active Substance: RAMIPRIL
     Dosage: 2.5 MG, 1X/DAY, 1 CAP
     Route: 048
  35. HERBALS\SENNOSIDES [Concomitant]
     Active Substance: HERBALS\SENNOSIDES
     Dosage: 17.2 MG, AS NEEDED (17.2 MG = 2 TAB QHS, PRN)
     Route: 048
  36. TRAMADOL HYDROCHLORIDE [Concomitant]
     Active Substance: TRAMADOL HYDROCHLORIDE
     Dosage: 1-2 TABS EVERY 4 HOURS AS NEEDED
     Route: 048
  37. TRAMADOL HYDROCHLORIDE [Concomitant]
     Active Substance: TRAMADOL HYDROCHLORIDE
     Dosage: 1 DF, 1-2 TABS EVERY 4 HOURS AS NEEDED
     Route: 048

REACTIONS (18)
  - Large intestinal obstruction [Unknown]
  - Intestinal obstruction [Unknown]
  - Diverticulitis [Unknown]
  - Drug ineffective [Unknown]
  - Therapeutic response shortened [Unknown]
  - Off label use [Unknown]
  - Off label use [Unknown]
  - Intentional product use issue [Unknown]
  - Inappropriate schedule of product administration [Unknown]
  - Condition aggravated [Not Recovered/Not Resolved]
  - Feeling abnormal [Unknown]
  - Headache [Recovered/Resolved]
  - Malaise [Not Recovered/Not Resolved]
  - Nausea [Not Recovered/Not Resolved]
  - Nocturia [Unknown]
  - Pruritus [Recovering/Resolving]
  - Headache [Not Recovered/Not Resolved]
  - Dental discomfort [Unknown]

NARRATIVE: CASE EVENT DATE: 20200101
